FAERS Safety Report 6720960-3 (Version None)
Quarter: 2010Q2

REPORT INFORMATION
  Report Type: 
  Country: None (occurrence: None)
  Receive Date: 20100512
  Receipt Date: 20100504
  Transmission Date: 20101027
  Serious: Yes (Death, Other)
  Sender: FDA-Public Use
  Company Number: US-BAYER-200839533NA

PATIENT
  Age: 35 Year
  Sex: Female
  Weight: 91 kg

DRUGS (2)
  1. YASMIN [Suspect]
     Indication: CONTRACEPTION
     Route: 048
     Dates: start: 20050101, end: 20080701
  2. OCELLA [Suspect]
     Indication: DRUG USE FOR UNKNOWN INDICATION
     Route: 048
     Dates: start: 20080701, end: 20081101

REACTIONS (3)
  - HEADACHE [None]
  - INTRACRANIAL VENOUS SINUS THROMBOSIS [None]
  - SYNCOPE [None]
